FAERS Safety Report 4465498-1 (Version None)
Quarter: 2004Q4

REPORT INFORMATION
  Report Type: 
  Country: None (occurrence: None)
  Receive Date: 20041001
  Receipt Date: 20040720
  Transmission Date: 20050328
  Serious: Yes (Hospitalization)
  Sender: FDA-Public Use
  Company Number: CIO04017116

PATIENT
  Age: 25 Year
  Sex: Male

DRUGS (1)
  1. PEPTO-BISMOL, ORIGINAL FLAVOR(BISMUTH SUBSALICYLATE 262 MG, CALCIUM CA [Suspect]
     Indication: GASTROENTERITIS
     Dosage: UNK CAPLET, UNK FREQ FOR 1 DAY, ORAL
     Route: 048

REACTIONS (5)
  - ANAPHYLACTIC REACTION [None]
  - SELF-MEDICATION [None]
  - SKIN TEST POSITIVE [None]
  - TRYPTASE [None]
  - URTICARIA [None]
